FAERS Safety Report 16254080 (Version 1)
Quarter: 2019Q2

REPORT INFORMATION
  Report Type: Spontaneous
  Country: ES (occurrence: ES)
  Receive Date: 20190430
  Receipt Date: 20190430
  Transmission Date: 20190711
  Serious: Yes (Death, Other)
  Sender: FDA-Public Use
  Company Number: ES-CELLTRION INC.-2019ES020609

PATIENT

DRUGS (1)
  1. INFLIXIMAB (UNKNOWN) [Suspect]
     Active Substance: INFLIXIMAB
     Indication: ACUTE GRAFT VERSUS HOST DISEASE
     Dosage: UNKNOWN
     Route: 065

REACTIONS (6)
  - Meningoencephalitis herpetic [Fatal]
  - Off label use [Fatal]
  - Gastrointestinal haemorrhage [Fatal]
  - Death [Fatal]
  - Varicella zoster virus infection [Fatal]
  - Pneumonia [Fatal]
